FAERS Safety Report 8089581-7 (Version None)
Quarter: 2012Q1

REPORT INFORMATION
  Report Type: 
  Country: None (occurrence: None)
  Receive Date: 20120128
  Receipt Date: 20110706
  Transmission Date: 20120608
  Serious: No
  Sender: FDA-Public Use
  Company Number: US-ABBOTT-11P-163-0837738-00

PATIENT

DRUGS (7)
  1. AZATHIOPRINE [Concomitant]
     Indication: COLITIS ULCERATIVE
  2. HUMIRA [Suspect]
     Indication: COLITIS ULCERATIVE
     Dates: start: 20110601
  3. ASPIRIN [Concomitant]
     Indication: CORONARY ARTERY DISEASE
  4. ISONIAZID [Concomitant]
     Indication: TUBERCULIN TEST
  5. PREDNISONE TAB [Concomitant]
     Indication: COLITIS ULCERATIVE
  6. CRESTOR [Concomitant]
     Indication: BLOOD CHOLESTEROL INCREASED
  7. LIALDA [Concomitant]
     Indication: COLITIS ULCERATIVE

REACTIONS (1)
  - DRUG EFFECT DECREASED [None]
